FAERS Safety Report 4558027-5 (Version None)
Quarter: 2005Q1

REPORT INFORMATION
  Report Type: 
  Country: None (occurrence: None)
  Receive Date: 20050121
  Receipt Date: 20040602
  Transmission Date: 20050727
  Serious: No
  Sender: FDA-Public Use
  Company Number: US-BRISTOL-MYERS SQUIBB COMPANY-12604419

PATIENT
  Age: 44 Year
  Sex: Male

DRUGS (9)
  1. SERZONE [Suspect]
     Route: 048
     Dates: start: 20000106, end: 20010701
  2. IMITREX [Concomitant]
  3. ZOLOFT [Concomitant]
  4. ALPRAZOLAM [Concomitant]
  5. VIAGRA [Concomitant]
  6. PHENAPHEN + CODEINE NO. 3 [Concomitant]
  7. ZERIT [Concomitant]
  8. EPIVIR [Concomitant]
  9. PRILOSEC [Concomitant]

REACTIONS (3)
  - ALANINE AMINOTRANSFERASE INCREASED [None]
  - ASPARTATE AMINOTRANSFERASE INCREASED [None]
  - BLOOD ALKALINE PHOSPHATASE INCREASED [None]
